FAERS Safety Report 25963073 (Version 2)
Quarter: 2025Q4

REPORT INFORMATION
  Report Type: Report from Study
  Country: US (occurrence: US)
  Receive Date: 20251027
  Receipt Date: 20251030
  Transmission Date: 20260117
  Serious: Yes (Other)
  Sender: ALEXION PHARMACEUTICALS
  Company Number: US-ASTRAZENECA-202510NAM022758US

PATIENT
  Age: 78 Year
  Sex: Female

DRUGS (1)
  1. STRENSIQ [Suspect]
     Active Substance: ASFOTASE ALFA
     Indication: Phosphorus metabolism disorder
     Dosage: 40 MILLIGRAM, TIW
     Route: 065

REACTIONS (10)
  - Neuropathy peripheral [Unknown]
  - Fatigue [Unknown]
  - Dental caries [Unknown]
  - Dry mouth [Unknown]
  - Dyspnoea [Unknown]
  - Wheezing [Unknown]
  - Asthma [Unknown]
  - Arthralgia [Unknown]
  - Myalgia [Unknown]
  - Neck pain [Unknown]
